FAERS Safety Report 14579921 (Version 1)
Quarter: 2018Q1

REPORT INFORMATION
  Report Type: Spontaneous
  Country: IT (occurrence: IT)
  Receive Date: 20180228
  Receipt Date: 20180228
  Transmission Date: 20180509
  Serious: Yes (Hospitalization)
  Sender: FDA-Public Use
  Company Number: IT-ROCHE-2079031

PATIENT
  Age: 85 Year
  Sex: Male

DRUGS (6)
  1. RYTMONORM [Concomitant]
     Active Substance: PROPAFENONE
     Route: 065
  2. CARDIOASPIRIN [Concomitant]
     Active Substance: ASPIRIN
     Route: 065
  3. RIVOTRIL [Suspect]
     Active Substance: CLONAZEPAM
     Indication: EPILEPSY
     Dosage: UNIT DOSE: 3 [DRP]
     Route: 048
  4. QUETIAPINA [Suspect]
     Active Substance: QUETIAPINE
     Indication: PSYCHOTIC DISORDER
     Route: 048
     Dates: start: 20150311, end: 20170724
  5. CALCIJEX [Concomitant]
     Active Substance: CALCITRIOL
     Route: 065
  6. LAXIPEG [Concomitant]
     Route: 065

REACTIONS (2)
  - Depressed level of consciousness [Recovered/Resolved]
  - Sopor [Recovered/Resolved]

NARRATIVE: CASE EVENT DATE: 20170724
